FAERS Safety Report 9601114 (Version 2)
Quarter: 2013Q4

REPORT INFORMATION
  Report Type: Spontaneous
  Country: US (occurrence: US)
  Receive Date: 20131004
  Receipt Date: 20131004
  Transmission Date: 20140711
  Serious: Yes (Other)
  Sender: FDA-Public Use
  Company Number: US-AMGEN-USASP2013037028

PATIENT
  Age: 64 Year
  Sex: Male
  Weight: 68.03 kg

DRUGS (5)
  1. ENBREL [Suspect]
     Indication: PSORIASIS
     Dosage: 50 MG, 2 TIMES/WK
     Route: 030
     Dates: start: 20120621, end: 20120823
  2. ATORVASTATIN [Concomitant]
     Dosage: 20 MG, UNK
  3. ASPIRIN BUFFERED [Concomitant]
     Dosage: 32 MG, UNK
  4. LISINOPRIL [Concomitant]
     Dosage: 5 MG, UNK
  5. METOPROLOL [Concomitant]
     Dosage: 25 MG,ER

REACTIONS (3)
  - Squamous cell carcinoma [Recovered/Resolved]
  - Drug ineffective [Unknown]
  - Psoriasis [Unknown]
